FAERS Safety Report 17580896 (Version 1)
Quarter: 2020Q1

REPORT INFORMATION
  Report Type: Spontaneous
  Country: US (occurrence: US)
  Receive Date: 20200321
  Receipt Date: 20200321
  Transmission Date: 20200409
  Serious: Yes (Death)
  Sender: FDA-Public Use
  Company Number: None

PATIENT
  Age: 35 Month
  Sex: Male

DRUGS (2)
  1. PEG 3350 [Concomitant]
     Active Substance: POLYETHYLENE GLYCOL 3350
  2. VIGABATRIN 500MG PODWER [Suspect]
     Active Substance: VIGABATRIN
     Indication: EPILEPSY
     Dosage: ?          OTHER FREQUENCY:QAM/QPM;?
     Dates: start: 20190726, end: 20200319

REACTIONS (1)
  - Death [None]

NARRATIVE: CASE EVENT DATE: 20200319
